FAERS Safety Report 10553513 (Version 1)
Quarter: 2014Q4

REPORT INFORMATION
  Report Type: Spontaneous
  Country: US (occurrence: US)
  Receive Date: 20141030
  Receipt Date: 20141030
  Transmission Date: 20150529
  Serious: No
  Sender: FDA-Public Use
  Company Number: US-009507513-1410USA015445

PATIENT

DRUGS (1)
  1. PROVENTIL [Suspect]
     Active Substance: ALBUTEROL
     Dosage: ROUTE ORAL INHALATION
     Route: 055

REACTIONS (4)
  - No adverse event [Unknown]
  - Device malfunction [Unknown]
  - Poor quality drug administered [Unknown]
  - Product quality issue [Unknown]
